FAERS Safety Report 10818473 (Version 2)
Quarter: 2015Q2

REPORT INFORMATION
  Report Type: Spontaneous
  Country: US (occurrence: US)
  Receive Date: 20150218
  Receipt Date: 20150506
  Transmission Date: 20150821
  Serious: No
  Sender: FDA-Public Use
  Company Number: US-009507513-1502USA008132

PATIENT

DRUGS (3)
  1. INTEGRILIN [Suspect]
     Active Substance: EPTIFIBATIDE
     Indication: ISCHAEMIC STROKE
     Dosage: 135 MCG/KG IV FOLLOWED BY 0.5 MCG/KG/MIN FOR 20 HOURS
     Route: 040
  2. ALTEPLASE [Suspect]
     Active Substance: ALTEPLASE
     Indication: ISCHAEMIC STROKE
     Dosage: 0.9 MG/KG, UNK
     Route: 042
  3. INTEGRILIN [Suspect]
     Active Substance: EPTIFIBATIDE
     Dosage: 0.5 MCG/KG/MIN FOR 20 HOURS
     Route: 041

REACTIONS (1)
  - Haemorrhage intracranial [Unknown]
